FAERS Safety Report 9345998 (Version 2)
Quarter: 2013Q3

REPORT INFORMATION
  Report Type: Spontaneous
  Country: IT (occurrence: IT)
  Receive Date: 20130613
  Receipt Date: 20130822
  Transmission Date: 20140515
  Serious: Yes (Hospitalization)
  Sender: FDA-Public Use
  Company Number: PHHY2013IT058799

PATIENT
  Age: 45 Year
  Sex: Female

DRUGS (4)
  1. OMEPRAZOLE [Suspect]
     Dosage: 1 DF, ONCE/SINGLE
     Route: 048
     Dates: start: 20130604, end: 20130604
  2. BRUFEN ^ABBOTT^ [Suspect]
     Indication: BACK PAIN
     Dosage: 1 DF, ONCE/SINGLE
     Route: 048
     Dates: start: 20130604, end: 20130604
  3. EVRA [Concomitant]
  4. TACHIFLU [Concomitant]
     Dates: start: 20130604, end: 20130604

REACTIONS (5)
  - Dyspnoea [Recovering/Resolving]
  - Tachycardia [Recovering/Resolving]
  - Pruritus [Recovering/Resolving]
  - Lip swelling [Recovering/Resolving]
  - Rash generalised [Recovering/Resolving]
